FAERS Safety Report 22228836 (Version 4)
Quarter: 2023Q2

REPORT INFORMATION
  Report Type: Spontaneous
  Country: US (occurrence: US)
  Receive Date: 20230419
  Receipt Date: 20230614
  Transmission Date: 20230722
  Serious: No
  Sender: FDA-Public Use
  Company Number: US-Calliditas-2023CAL00363

PATIENT
  Age: 55 Year
  Sex: Female

DRUGS (1)
  1. TARPEYO [Suspect]
     Active Substance: BUDESONIDE
     Indication: IgA nephropathy
     Dosage: 16MG (4 CAPSULES) ONCE DAILY
     Route: 048
     Dates: start: 20230320

REACTIONS (17)
  - Hypertension [Recovered/Resolved]
  - Dizziness [Unknown]
  - Joint swelling [Unknown]
  - Swelling face [Unknown]
  - Ocular hyperaemia [Unknown]
  - Fatigue [Unknown]
  - Lethargy [Unknown]
  - Frustration tolerance decreased [Unknown]
  - Depressed mood [Unknown]
  - Proteinuria [Unknown]
  - Peripheral swelling [Unknown]
  - Peripheral swelling [Not Recovered/Not Resolved]
  - Pain in extremity [Unknown]
  - Arthralgia [Unknown]
  - Weight increased [Unknown]
  - Prescribed underdose [Unknown]
  - Peripheral swelling [Unknown]

NARRATIVE: CASE EVENT DATE: 20230320
